FAERS Safety Report 12759296 (Version 1)
Quarter: 2016Q3

REPORT INFORMATION
  Report Type: Spontaneous
  Country: US (occurrence: US)
  Receive Date: 20160919
  Receipt Date: 20160919
  Transmission Date: 20161109
  Serious: No
  Sender: FDA-Public Use
  Company Number: US-JUBILANT HOLLISTERSTIER LLC-1057440

PATIENT
  Age: 16 Year
  Sex: Female
  Weight: 33.1 kg

DRUGS (19)
  1. POLLENS - WEEDS, MARSHELDER/POVERTY MIX [Suspect]
     Active Substance: CYCLACHAENA XANTHIFOLIA POLLEN\IVA ANNUA POLLEN\IVA AXILLARIS POLLEN
     Dates: start: 20160215, end: 20160303
  2. POLLENS - TREES, TREE MIX 5 [Suspect]
     Active Substance: ACER NEGUNDO POLLEN\ACER RUBRUM POLLEN\ACER SACCHARUM POLLEN\CARYA ILLINOINENSIS POLLEN\PLATANUS OCCIDENTALIS POLLEN\QUERCUS ALBA POLLEN\QUERCUS RUBRA POLLEN\QUERCUS VIRGINIANA POLLEN\SALIX NIGRA POLLEN
     Dates: start: 20160215, end: 20160303
  3. POLLENS - TREES, TREE MIX 6 [Suspect]
     Active Substance: BETULA NIGRA POLLEN\BETULA PAPYRIFERA POLLEN\BETULA PENDULA POLLEN\FAGUS GRANDIFOLIA POLLEN\FRAXINUS AMERICANA POLLEN\JUGLANS NIGRA POLLEN\POPULUS DELTOIDES POLLEN\ULMUS AMERICANA POLLEN
     Dates: start: 20160215, end: 20160303
  4. POLLENS - WEEDS AND GARDEN PLANTS, PIGWEED, ROUGH REDROOT AMARANTHUS RETROFLEXUS [Suspect]
     Active Substance: AMARANTHUS RETROFLEXUS POLLEN
     Dates: start: 20160215, end: 20160303
  5. BERMUDA GRASS, STANDARDIZED [Suspect]
     Active Substance: CYNODON DACTYLON POLLEN
     Dates: start: 20160215, end: 20160303
  6. STANDARDIZED GRASS POLLEN, GRASS MIX 7 [Suspect]
     Active Substance: AGROSTIS GIGANTEA POLLEN\ANTHOXANTHUM ODORATUM POLLEN\DACTYLIS GLOMERATA POLLEN\FESTUCA PRATENSIS POLLEN\LOLIUM PERENNE POLLEN\PHLEUM PRATENSE POLLEN\POA PRATENSIS POLLEN
     Dates: start: 20160215, end: 20160303
  7. RAGWEED MIXTURE [Suspect]
     Active Substance: AMBROSIA ARTEMISIIFOLIA POLLEN\AMBROSIA BIDENTATA POLLEN\AMBROSIA PSILOSTACHYA POLLEN\AMBROSIA TRIFIDA POLLEN
     Dates: start: 20160215, end: 20160303
  8. PROAIR HFA [Concomitant]
     Active Substance: ALBUTEROL SULFATE
  9. ASMANEX HFA [Concomitant]
     Active Substance: MOMETASONE FUROATE
  10. POLLENS - WEEDS, KOCHIA SCOPARIA [Suspect]
     Active Substance: BASSIA SCOPARIA POLLEN
     Indication: HYPERSENSITIVITY
     Dates: start: 20160215, end: 20160303
  11. BERMUDA GRASS, STANDARDIZED [Suspect]
     Active Substance: CYNODON DACTYLON POLLEN
     Dates: start: 20160215, end: 20160303
  12. STERILE DILUENT FOR ALLERGENIC EXTRACT (ALBUMIN (HUMAN)\PHENOL) [Suspect]
     Active Substance: ALBUMIN HUMAN\PHENOL
     Dates: start: 20160215, end: 20160303
  13. MIXTURE OF STANDARDIZED MITES [Suspect]
     Active Substance: DERMATOPHAGOIDES FARINAE\DERMATOPHAGOIDES PTERONYSSINUS
     Dates: start: 20160215, end: 20160303
  14. INSECTS (WHOLE BODY) COCKROACH MIX [Suspect]
     Active Substance: BLATELLA GERMANICA\PERIPLANETA AMERICANA
     Dates: start: 20160215, end: 20160303
  15. STANDARDIZED CAT HAIR [Suspect]
     Active Substance: FELIS CATUS HAIR
     Dates: start: 20160215, end: 20160303
  16. POLLENS - WEEDS, DOCK/SORREL MIX [Suspect]
     Active Substance: RUMEX ACETOSELLA POLLEN\RUMEX CRISPUS POLLEN
     Dates: start: 20160215, end: 20160303
  17. FLUTICASONE PROPIONATE. [Concomitant]
     Active Substance: FLUTICASONE PROPIONATE
  18. ENGLISH PLANTAIN POLLEN [Suspect]
     Active Substance: PLANTAGO LANCEOLATA POLLEN
     Dates: start: 20160215, end: 20160303
  19. ZYRTEC [Concomitant]
     Active Substance: CETIRIZINE HYDROCHLORIDE

REACTIONS (3)
  - Sneezing [Recovered/Resolved]
  - Rhinorrhoea [Recovered/Resolved]
  - Cough [Recovered/Resolved]
